FAERS Safety Report 22217273 (Version 4)
Quarter: 2023Q4

REPORT INFORMATION
  Report Type: Spontaneous
  Country: US (occurrence: US)
  Receive Date: 20230417
  Receipt Date: 20231006
  Transmission Date: 20240110
  Serious: No
  Sender: FDA-Public Use
  Company Number: US-BRISTOL-MYERS SQUIBB COMPANY-2023-053507

PATIENT
  Age: 59 Year
  Sex: Male

DRUGS (1)
  1. REVLIMID [Suspect]
     Active Substance: LENALIDOMIDE
     Indication: Plasma cell myeloma
     Route: 048

REACTIONS (6)
  - Oedema peripheral [Unknown]
  - Skin hypertrophy [Unknown]
  - Diarrhoea [Unknown]
  - Muscle twitching [Unknown]
  - Weight decreased [Unknown]
  - Off label use [Unknown]

NARRATIVE: CASE EVENT DATE: 20230315
